FAERS Safety Report 7353188-7 (Version None)
Quarter: 2011Q1

REPORT INFORMATION
  Report Type: 
  Country: None (occurrence: None)
  Receive Date: 20110315
  Receipt Date: 20110307
  Transmission Date: 20110831
  Serious: Yes (Hospitalization)
  Sender: FDA-Public Use
  Company Number: NL-MEDIMMUNE-MEDI-0012824

PATIENT
  Sex: Female

DRUGS (2)
  1. SYNAGIS [Suspect]
     Route: 030
     Dates: start: 20110208, end: 20110208
  2. SYNAGIS [Suspect]
     Route: 030
     Dates: start: 20110307, end: 20110307

REACTIONS (4)
  - PYREXIA [None]
  - NASOPHARYNGITIS [None]
  - FLUID INTAKE REDUCED [None]
  - CYANOSIS [None]
